FAERS Safety Report 7780790-0 (Version None)
Quarter: 2011Q3

REPORT INFORMATION
  Report Type: 
  Country: None (occurrence: None)
  Receive Date: 20110927
  Receipt Date: 20110921
  Transmission Date: 20111222
  Serious: Yes (Other)
  Sender: FDA-Public Use
  Company Number: US-PFIZER INC-2011225349

PATIENT
  Sex: Female
  Weight: 90.703 kg

DRUGS (2)
  1. KLONOPIN [Concomitant]
     Indication: CONVULSION
     Dosage: 0.5 MG, 2X/DAY
  2. DILANTIN [Suspect]
     Indication: CONVULSION
     Dosage: 400 MG, DAILY
     Dates: start: 19720101

REACTIONS (1)
  - NEUROPATHY PERIPHERAL [None]
